FAERS Safety Report 10632274 (Version 1)
Quarter: 2014Q4

REPORT INFORMATION
  Report Type: Spontaneous
  Country: US (occurrence: US)
  Receive Date: 20141205
  Receipt Date: 20141205
  Transmission Date: 20150529
  Serious: No
  Sender: FDA-Public Use
  Company Number: US-BRISTOL-MYERS SQUIBB COMPANY-21278791

PATIENT
  Age: 37 Year
  Sex: Male
  Weight: 97.05 kg

DRUGS (5)
  1. PROPANOLOL HYDROCHLORIDE [Concomitant]
     Active Substance: PROPRANOLOL HYDROCHLORIDE
  2. LISINOPRIL. [Concomitant]
     Active Substance: LISINOPRIL
  3. LITHIUM [Concomitant]
     Active Substance: LITHIUM CARBONATE
  4. TRAZODONE HYDROCHLORIDE. [Concomitant]
     Active Substance: TRAZODONE HYDROCHLORIDE
  5. ABILIFY [Suspect]
     Active Substance: ARIPIPRAZOLE
     Dosage: DOSE STARTED AT 5 MG, INCREASED TO 10 MG AND THEN TO 15 MG.?CURRENT AT 20MG

REACTIONS (2)
  - Fatigue [Unknown]
  - Insomnia [Unknown]
